FAERS Safety Report 4934522-1 (Version None)
Quarter: 2006Q1

REPORT INFORMATION
  Report Type: 
  Country: None (occurrence: None)
  Receive Date: 20060307
  Receipt Date: 20050719
  Transmission Date: 20060701
  Serious: No
  Sender: FDA-Public Use
  Company Number: US-BRISTOL-MYERS SQUIBB COMPANY-13128988

PATIENT
  Age: 40 Year
  Sex: Female

DRUGS (3)
  1. MONISTAT-1 VAG OINT 6.5% [Suspect]
     Indication: VULVOVAGINAL MYCOTIC INFECTION
     Route: 067
     Dates: start: 20050717, end: 20050717
  2. FLONASE [Concomitant]
  3. IMITREX [Concomitant]

REACTIONS (2)
  - VAGINAL PAIN [None]
  - VULVAL OEDEMA [None]
